FAERS Safety Report 13401362 (Version 1)
Quarter: 2017Q2

REPORT INFORMATION
  Report Type: Spontaneous
  Country: CN (occurrence: CN)
  Receive Date: 20170404
  Receipt Date: 20170404
  Transmission Date: 20170830
  Serious: Yes (Other)
  Sender: FDA-Public Use
  Company Number: CN-ASTRAZENECA-2017SE34587

PATIENT
  Age: 13 Year
  Sex: Male

DRUGS (3)
  1. BUDESONIDE. [Suspect]
     Active Substance: BUDESONIDE
     Indication: DYSPNOEA
     Route: 055
     Dates: start: 20161118, end: 20161118
  2. SALBUTAMOL SULFATE [Suspect]
     Active Substance: ALBUTEROL SULFATE
     Indication: DYSPNOEA
     Route: 055
     Dates: start: 20161118, end: 20161118
  3. SODIUM CHLORIDE. [Concomitant]
     Active Substance: SODIUM CHLORIDE
     Indication: ILL-DEFINED DISORDER
     Dates: start: 20161118, end: 20161118

REACTIONS (7)
  - Staring [Unknown]
  - Pallor [Unknown]
  - Eye disorder [Unknown]
  - Heart rate increased [Unknown]
  - Trismus [Unknown]
  - Muscle spasms [Recovered/Resolved]
  - Cyanosis [Unknown]

NARRATIVE: CASE EVENT DATE: 20161118
